FAERS Safety Report 6841812-4 (Version None)
Quarter: 2010Q3

REPORT INFORMATION
  Report Type: 
  Country: None (occurrence: None)
  Receive Date: 20100714
  Receipt Date: 20070803
  Transmission Date: 20110219
  Serious: No
  Sender: FDA-Public Use
  Company Number: US-PFIZER INC-2007060187

PATIENT
  Sex: Female
  Weight: 50 kg

DRUGS (12)
  1. CHANTIX [Suspect]
     Indication: SMOKING CESSATION THERAPY
     Route: 048
     Dates: start: 20070701
  2. CELEBREX [Concomitant]
  3. ACIPHEX [Concomitant]
  4. IRON [Concomitant]
  5. ZINC [Concomitant]
  6. GLUCOSAMINE [Concomitant]
  7. CALCIUM [Concomitant]
  8. VITAMIN D [Concomitant]
  9. VITAMIN B-12 [Concomitant]
  10. CYCLOBENZAPRINE [Concomitant]
  11. CITALOPRAM HYDROBROMIDE [Concomitant]
  12. OXYCODONE HCL [Concomitant]

REACTIONS (5)
  - CONSTIPATION [None]
  - DYSGEUSIA [None]
  - FATIGUE [None]
  - NAUSEA [None]
  - SOMNOLENCE [None]
